FAERS Safety Report 25278215 (Version 1)
Quarter: 2025Q2

REPORT INFORMATION
  Report Type: Spontaneous
  Country: US (occurrence: US)
  Receive Date: 20250507
  Receipt Date: 20250507
  Transmission Date: 20250717
  Serious: No
  Sender: PFIZER
  Company Number: US-PFIZER INC-202500053267

PATIENT
  Age: 90 Year
  Sex: Male

DRUGS (7)
  1. CIBINQO [Suspect]
     Active Substance: ABROCITINIB
     Dosage: 50 MG, DAILY (TAKE 1 TABLET BY MOUTH)
     Route: 048
     Dates: start: 202503
  2. DUPIXENT [Concomitant]
     Active Substance: DUPILUMAB
  3. PEPCID [Concomitant]
     Active Substance: FAMOTIDINE
  4. AMOXICILLIN [Concomitant]
     Active Substance: AMOXICILLIN
  5. TORSEMIDE [Concomitant]
     Active Substance: TORSEMIDE
  6. JANUVIA [Concomitant]
     Active Substance: SITAGLIPTIN PHOSPHATE
  7. HYDROXYZINE HYDROCHLORIDE [Concomitant]
     Active Substance: HYDROXYZINE HYDROCHLORIDE

REACTIONS (1)
  - Nausea [Unknown]
